FAERS Safety Report 13688615 (Version 1)
Quarter: 2017Q2

REPORT INFORMATION
  Report Type: Spontaneous
  Country: US (occurrence: US)
  Receive Date: 20170623
  Receipt Date: 20170623
  Transmission Date: 20170830
  Serious: Yes (Life-Threatening, Hospitalization, Other)
  Sender: FDA-Public Use
  Company Number: None

PATIENT
  Age: 58 Year
  Sex: Female
  Weight: 103.5 kg

DRUGS (2)
  1. ATIVAN [Suspect]
     Active Substance: LORAZEPAM
     Indication: DEPENDENCE
     Dosage: ?          QUANTITY:1 TABLET(S);?
     Route: 048
     Dates: start: 20140225, end: 20140721
  2. ATIVAN [Suspect]
     Active Substance: LORAZEPAM
     Indication: VERTIGO
     Dosage: ?          QUANTITY:1 TABLET(S);?
     Route: 048
     Dates: start: 20140225, end: 20140721

REACTIONS (17)
  - Drug effect increased [None]
  - Drug use disorder [None]
  - Tremor [None]
  - Feeding disorder [None]
  - Crying [None]
  - Anxiety [None]
  - Muscle twitching [None]
  - Feeling abnormal [None]
  - Mental impairment [None]
  - Withdrawal syndrome [None]
  - Insomnia [None]
  - Palpitations [None]
  - Malaise [None]
  - Hyperhidrosis [None]
  - Weight decreased [None]
  - Pain [None]
  - Suicidal ideation [None]

NARRATIVE: CASE EVENT DATE: 20140401
